FAERS Safety Report 9817291 (Version 4)
Quarter: 2014Q1

REPORT INFORMATION
  Report Type: Report from Study
  Country: CA (occurrence: CA)
  Receive Date: 20140115
  Receipt Date: 20140225
  Transmission Date: 20141002
  Serious: Yes (Hospitalization, Other)
  Sender: FDA-Public Use
  Company Number: CA-ROCHE-1146509

PATIENT
  Age: 46 Year
  Sex: Female
  Weight: 80.3 kg

DRUGS (7)
  1. RITUXAN [Suspect]
     Indication: RHEUMATOID ARTHRITIS
     Dosage: DAY 1, 15
     Route: 042
     Dates: start: 20120827
  2. CELEBREX [Concomitant]
  3. PANTOLOC [Concomitant]
  4. ARAVA [Concomitant]
  5. ACETAMINOPHEN [Concomitant]
     Indication: PREMEDICATION
     Route: 048
     Dates: start: 20130314
  6. METHYLPREDNISOLONE [Concomitant]
     Indication: PREMEDICATION
     Route: 042
     Dates: start: 20130314
  7. OLMETEC [Concomitant]
     Indication: BLOOD PRESSURE

REACTIONS (6)
  - Coronary arterial stent insertion [Unknown]
  - Cardiac stress test [Unknown]
  - Infusion related reaction [Unknown]
  - Dysphagia [Recovered/Resolved]
  - Throat irritation [Recovered/Resolved]
  - Neck pain [Unknown]
